FAERS Safety Report 20897969 (Version 1)
Quarter: 2022Q2

REPORT INFORMATION
  Report Type: Spontaneous
  Country: CN (occurrence: CN)
  Receive Date: 20220531
  Receipt Date: 20220531
  Transmission Date: 20220721
  Serious: Yes (Other)
  Sender: FDA-Public Use
  Company Number: CN-IRONWOOD PHARMACEUTICALS, INC.-IRWD2022000794

PATIENT
  Sex: Female
  Weight: 48 kg

DRUGS (3)
  1. LINACLOTIDE [Suspect]
     Active Substance: LINACLOTIDE
     Indication: Constipation
     Dosage: 290 ?G, QD
     Route: 048
     Dates: start: 20220508, end: 20220508
  2. LOPERAMIDE HYDROCHLORIDE [Concomitant]
     Active Substance: LOPERAMIDE HYDROCHLORIDE
     Dosage: 4 MG
     Route: 048
  3. MONTMORILLONITE [Concomitant]
     Active Substance: MONTMORILLONITE
     Dosage: 3 G, TID
     Route: 048

REACTIONS (2)
  - Anal incontinence [Recovering/Resolving]
  - Diarrhoea [Recovering/Resolving]

NARRATIVE: CASE EVENT DATE: 20220509
